FAERS Safety Report 14979670 (Version 1)
Quarter: 2018Q2

REPORT INFORMATION
  Report Type: Spontaneous
  Country: DE (occurrence: DE)
  Receive Date: 20180606
  Receipt Date: 20180606
  Transmission Date: 20180711
  Serious: Yes (Other)
  Sender: FDA-Public Use
  Company Number: DE-SHIRE-DE201820892

PATIENT

DRUGS (2)
  1. HUMAN ALBUMIN [Suspect]
     Active Substance: ALBUMIN HUMAN
     Indication: CARDIOVASCULAR DISORDER
     Dosage: 5 %, UNK (HUMAN ALBUMIN 50 G/L)
     Dates: start: 201702, end: 201707
  2. HUMAN ALBUMIN [Suspect]
     Active Substance: ALBUMIN HUMAN
     Dosage: 20 %, UNK (HUMAN ALBUMIN 200G/L)
     Dates: start: 201702, end: 201707

REACTIONS (1)
  - Hepatitis C [Unknown]
